FAERS Safety Report 22219696 (Version 1)
Quarter: 2023Q2

REPORT INFORMATION
  Report Type: Spontaneous
  Country: None (occurrence: US)
  Receive Date: 20230417
  Receipt Date: 20230417
  Transmission Date: 20230722
  Serious: No
  Sender: FDA-Public Use
  Company Number: US-B.Braun Medical Inc.-2140467

PATIENT
  Sex: Female

DRUGS (1)
  1. EPINEPHRINE\LIDOCAINE HYDROCHLORIDE [Suspect]
     Active Substance: EPINEPHRINE\LIDOCAINE HYDROCHLORIDE
     Indication: Epidural anaesthesia

REACTIONS (3)
  - Foetal heart rate deceleration abnormality [Recovered/Resolved]
  - Anaesthetic complication [Recovered/Resolved]
  - Maternal exposure during delivery [Recovered/Resolved]
